FAERS Safety Report 4403887-1 (Version None)
Quarter: 2004Q3

REPORT INFORMATION
  Report Type: 
  Country: None (occurrence: None)
  Receive Date: 20040719
  Receipt Date: 20040712
  Transmission Date: 20050211
  Serious: Yes (Death, Other)
  Sender: FDA-Public Use
  Company Number: 2003-07-3313

PATIENT
  Age: 56 Year
  Sex: Female

DRUGS (5)
  1. RIBAVIRIN [Suspect]
     Indication: SEVERE ACUTE RESPIRATORY SYNDROME
     Dosage: SEE IMAGE
     Route: 042
     Dates: start: 20030324, end: 20030328
  2. LEVOFLOXACIN [Suspect]
     Dosage: 500 MG QD INTRAVENOUS
     Route: 042
     Dates: start: 20030327, end: 20030101
  3. VASOPRESSIN INJECTION [Concomitant]
  4. DOPAMINE HCL [Concomitant]
  5. METHYLPREDNISOLONE [Concomitant]

REACTIONS (4)
  - CONVULSION [None]
  - HYPOKALAEMIA [None]
  - LEUKOCYTOSIS [None]
  - TROPONIN INCREASED [None]
